FAERS Safety Report 23223022 (Version 2)
Quarter: 2024Q1

REPORT INFORMATION
  Report Type: Report from Study
  Country: TR (occurrence: TR)
  Receive Date: 20231123
  Receipt Date: 20240102
  Transmission Date: 20240410
  Serious: Yes (Death)
  Sender: FDA-Public Use
  Company Number: TR-PFIZER INC-PV202300191338

PATIENT
  Age: 67 Year
  Sex: Female

DRUGS (2)
  1. ELRANATAMAB [Suspect]
     Active Substance: ELRANATAMAB
     Indication: Plasma cell myeloma refractory
     Dosage: 76 MG, 5 WEEKS, ONCE A WEEK.
     Route: 058
     Dates: start: 20230410, end: 20230808
  2. ZOLEDRONIC ACID [Concomitant]
     Active Substance: ZOLEDRONIC ACID
     Dosage: UNK
     Dates: start: 202302

REACTIONS (3)
  - Epidural haemorrhage [Fatal]
  - Pneumonia [Fatal]
  - Platelet count decreased [Fatal]
